FAERS Safety Report 7041162-X (Version None)
Quarter: 2010Q4

REPORT INFORMATION
  Report Type: 
  Country: None (occurrence: None)
  Receive Date: 20101013
  Receipt Date: 20101007
  Transmission Date: 20110411
  Serious: Yes (Hospitalization)
  Sender: FDA-Public Use
  Company Number: US-GENZYME-CAMP-1000613

PATIENT
  Sex: Female
  Weight: 95.238 kg

DRUGS (2)
  1. ALEMTUZUMAB [Suspect]
     Indication: MULTIPLE SCLEROSIS
     Dosage: 12 MG, QDX5
     Route: 042
     Dates: start: 20090608, end: 20090612
  2. METHYLPREDNISOLONE [Concomitant]
     Indication: MULTIPLE SCLEROSIS
     Dosage: 1 G, QDX3
     Route: 042
     Dates: start: 20090608, end: 20090610

REACTIONS (3)
  - ABDOMINAL PAIN [None]
  - GASTRITIS [None]
  - OESOPHAGEAL CANDIDIASIS [None]
